FAERS Safety Report 9496387 (Version 2)
Quarter: 2013Q4

REPORT INFORMATION
  Report Type: Spontaneous
  Country: US (occurrence: None)
  Receive Date: 20130829
  Receipt Date: 20131030
  Transmission Date: 20140711
  Serious: Yes (Hospitalization, Other)
  Sender: FDA-Public Use
  Company Number: UTC-037225

PATIENT
  Age: 72 Year
  Sex: Female
  Weight: 65 kg

DRUGS (12)
  1. REMODULIN [Suspect]
     Indication: PULMONARY HYPERTENSION
     Dosage: 0.06 UG/KG, 1 IN 1 MIN.
     Route: 058
  2. REMODULIN [Suspect]
     Indication: SYSTEMIC LUPUS ERYTHEMATOSUS
     Dosage: 0.06 UG/KG, 1 IN 1 MIN.
     Route: 058
  3. VITRON-C [Concomitant]
  4. CALCITRIOL [Concomitant]
  5. GABAPENTIN [Concomitant]
  6. HYDROXYCHLOROQUINE SULFATE [Concomitant]
  7. LEVOTHYROXINE [Concomitant]
  8. PREDNISONE [Concomitant]
  9. SIMVASTATIN [Concomitant]
  10. RANITIDINE HYDROCHLORIDE [Concomitant]
  11. ZYRTEC (CETIRIZINE HYDROCHLORIDE) [Concomitant]
  12. SODIUM BICARBONATE [Concomitant]

REACTIONS (19)
  - Pneumonia [None]
  - Renal failure [None]
  - Renal failure chronic [None]
  - Septic shock [None]
  - Thrombocytopenia [None]
  - Cardiac failure congestive [None]
  - Asthenia [None]
  - Failure to thrive [None]
  - Generalised oedema [None]
  - Arteriovenous shunt operation [None]
  - Coagulopathy [None]
  - Haemorrhage [None]
  - Cardiac output increased [None]
  - Pulmonary arterial pressure increased [None]
  - Multi-organ failure [None]
  - Hypertension [None]
  - Oral candidiasis [None]
  - Pneumonia [None]
  - General physical health deterioration [None]
